FAERS Safety Report 17136007 (Version 2)
Quarter: 2019Q4

REPORT INFORMATION
  Report Type: Report from Study
  Country: US (occurrence: US)
  Receive Date: 20191210
  Receipt Date: 20191227
  Transmission Date: 20200122
  Serious: Yes (Other)
  Sender: FDA-Public Use
  Company Number: US-EMD SERONO-9133206

PATIENT
  Age: 57 Year
  Sex: Female
  Weight: 56 kg

DRUGS (2)
  1. REBIF [Suspect]
     Active Substance: INTERFERON BETA-1A
     Route: 058
     Dates: start: 2013
  2. REBIF [Suspect]
     Active Substance: INTERFERON BETA-1A
     Indication: RELAPSING MULTIPLE SCLEROSIS
     Route: 058
     Dates: start: 20071102

REACTIONS (6)
  - Diplopia [Unknown]
  - Fatigue [Unknown]
  - Bradycardia [Unknown]
  - Blood pressure abnormal [Unknown]
  - Porphyria non-acute [Unknown]
  - Stress [Unknown]

NARRATIVE: CASE EVENT DATE: 201906
